FAERS Safety Report 10041776 (Version 2)
Quarter: 2014Q2

REPORT INFORMATION
  Report Type: Spontaneous
  Country: US (occurrence: US)
  Receive Date: 20140327
  Receipt Date: 20140423
  Transmission Date: 20141212
  Serious: Yes (Other)
  Sender: FDA-Public Use
  Company Number: US-JNJFOC-20140307240

PATIENT
  Sex: Female

DRUGS (1)
  1. VISINE A.C.  0.5 OZ [Suspect]
     Indication: PRODUCT USED FOR UNKNOWN INDICATION
     Route: 047

REACTIONS (2)
  - Eye haemorrhage [Recovering/Resolving]
  - Eye irritation [Recovering/Resolving]
